FAERS Safety Report 4930062-4 (Version None)
Quarter: 2006Q1

REPORT INFORMATION
  Report Type: 
  Country: None (occurrence: None)
  Receive Date: 20060228
  Receipt Date: 20060206
  Transmission Date: 20060701
  Serious: Yes (Hospitalization, Other)
  Sender: FDA-Public Use
  Company Number: DE_051017170

PATIENT
  Age: 53 Year
  Sex: Female
  Weight: 104 kg

DRUGS (2)
  1. YENTREVE (DULOXETINE HYDROCHLORIDE) CAPSULE [Suspect]
     Indication: STRESS INCONTINENCE
     Dosage: 40 MG, 2/D, ORAL
     Route: 048
     Dates: start: 20050720, end: 20050101
  2. CORTISONE ACETATE TAB [Concomitant]

REACTIONS (26)
  - BLOOD BILIRUBIN INCREASED [None]
  - BLOOD PRESSURE INCREASED [None]
  - BRONCHITIS [None]
  - CARDIAC FUNCTION TEST ABNORMAL [None]
  - CARDIOMEGALY [None]
  - CHOLELITHIASIS [None]
  - DECREASED APPETITE [None]
  - DIABETES MELLITUS NON-INSULIN-DEPENDENT [None]
  - FLUID RETENTION [None]
  - GENERAL PHYSICAL HEALTH DETERIORATION [None]
  - HEPATIC STEATOSIS [None]
  - HEPATOCELLULAR DAMAGE [None]
  - HEPATOMEGALY [None]
  - HYPERCHOLESTEROLAEMIA [None]
  - HYPERURICAEMIA [None]
  - HYPONATRAEMIA [None]
  - METABOLIC SYNDROME [None]
  - MOVEMENT DISORDER [None]
  - NOCTURIA [None]
  - OEDEMA PERIPHERAL [None]
  - PULMONARY CONGESTION [None]
  - SLEEP DISORDER [None]
  - STRESS INCONTINENCE [None]
  - TREATMENT NONCOMPLIANCE [None]
  - VITREOUS DISORDER [None]
  - WEIGHT INCREASED [None]
